FAERS Safety Report 12182162 (Version 2)
Quarter: 2016Q2

REPORT INFORMATION
  Report Type: Report from Study
  Country: BR (occurrence: BR)
  Receive Date: 20160316
  Receipt Date: 20160428
  Transmission Date: 20160815
  Serious: Yes (Hospitalization, Other)
  Sender: FDA-Public Use
  Company Number: BR-ROCHE-1726278

PATIENT
  Age: 36 Year
  Sex: Male
  Weight: 100 kg

DRUGS (6)
  1. AEROLIN [Concomitant]
     Active Substance: ALBUTEROL
     Indication: ASTHMA
     Route: 065
     Dates: start: 2012
  2. PREDNISOLONE SODIUM PHOSPHATE. [Suspect]
     Active Substance: PREDNISOLONE SODIUM PHOSPHATE
     Indication: BRONCHITIS
     Route: 048
  3. XOLAIR [Suspect]
     Active Substance: OMALIZUMAB
     Indication: ASTHMA
     Route: 058
     Dates: start: 20151013
  4. XOLAIR [Suspect]
     Active Substance: OMALIZUMAB
     Dosage: 3 AMPOULES
     Route: 058
     Dates: start: 201512
  5. XOLAIR [Suspect]
     Active Substance: OMALIZUMAB
     Dosage: 3 AMPOULES
     Route: 058
     Dates: start: 201602, end: 201602
  6. CLENIL (BRAZIL) [Concomitant]
     Indication: ASTHMA
     Route: 065
     Dates: start: 2012

REACTIONS (6)
  - Hyperhidrosis [Not Recovered/Not Resolved]
  - Chest pain [Not Recovered/Not Resolved]
  - Malaise [Recovering/Resolving]
  - Asthma [Recovering/Resolving]
  - Drug ineffective [Unknown]
  - Hypertension [Not Recovered/Not Resolved]

NARRATIVE: CASE EVENT DATE: 201512
